FAERS Safety Report 9154383 (Version 2)
Quarter: 2013Q1

REPORT INFORMATION
  Report Type: Spontaneous
  Country: US (occurrence: None)
  Receive Date: 20130206
  Receipt Date: 20130213
  Transmission Date: 20140127
  Serious: Yes (Other)
  Sender: FDA-Public Use
  Company Number: JPI-P-029457

PATIENT
  Age: 50 Year
  Sex: Female

DRUGS (1)
  1. XYREM (500 MILLIGRAM/MILLILITERS, SOLUTION) (SODIUM OXYBATE) [Suspect]
     Indication: NARCOLEPSY
     Dosage: 5 GM (5 GM, 1 IN 1 D), ORAL
     Route: 048
     Dates: start: 2008, end: 201301

REACTIONS (4)
  - Convulsion [None]
  - Suicidal ideation [None]
  - Incorrect dose administered [None]
  - Treatment noncompliance [None]
